FAERS Safety Report 14282185 (Version 2)
Quarter: 2018Q3

REPORT INFORMATION
  Report Type: Spontaneous
  Country: RU (occurrence: RU)
  Receive Date: 20171213
  Receipt Date: 20180713
  Transmission Date: 20181010
  Serious: Yes (Hospitalization, Other)
  Sender: FDA-Public Use
  Company Number: RU-ASTRAZENECA-2017SF26139

PATIENT
  Age: 81 Year
  Sex: Female
  Weight: 60 kg

DRUGS (6)
  1. BRILINTA [Suspect]
     Active Substance: TICAGRELOR
     Indication: MYOCARDIAL INFARCTION
     Route: 048
     Dates: start: 20171004
  2. ASPIRIN CARDIO [Concomitant]
     Active Substance: ASPIRIN
  3. OMEPRAZOLE. [Concomitant]
     Active Substance: OMEPRAZOLE
  4. INSULIN [Concomitant]
     Active Substance: INSULIN NOS
  5. PRESTARIUM A [Concomitant]
     Active Substance: PERINDOPRIL ARGININE
  6. VEROSPIRON [Concomitant]
     Active Substance: SPIRONOLACTONE

REACTIONS (6)
  - Blood pressure decreased [Recovered/Resolved]
  - Chest pain [Unknown]
  - Vomiting [Unknown]
  - Altered state of consciousness [Not Recovered/Not Resolved]
  - Tachycardia [Unknown]
  - Blood glucose increased [Recovered/Resolved]

NARRATIVE: CASE EVENT DATE: 2017
